FAERS Safety Report 12248542 (Version 1)
Quarter: 2016Q2

REPORT INFORMATION
  Report Type: Spontaneous
  Country: IL (occurrence: IL)
  Receive Date: 20160408
  Receipt Date: 20160408
  Transmission Date: 20160815
  Serious: Yes (Hospitalization)
  Sender: FDA-Public Use
  Company Number: IL-FRESENIUS KABI-FK201601711

PATIENT
  Age: 27 Year
  Sex: Female

DRUGS (1)
  1. ADENOSINE INJECTION (MANUFACTURER UNKNOWN) (ADEOSINE) (ADENOSINE) [Suspect]
     Active Substance: ADENOSINE
     Indication: PRODUCT USED FOR UNKNOWN INDICATION
     Route: 065

REACTIONS (1)
  - Torsade de pointes [Recovered/Resolved]
